FAERS Safety Report 16353552 (Version 1)
Quarter: 2019Q2

REPORT INFORMATION
  Report Type: Spontaneous
  Country: US (occurrence: US)
  Receive Date: 20190524
  Receipt Date: 20190524
  Transmission Date: 20190711
  Serious: No
  Sender: FDA-Public Use
  Company Number: US-AMGEN-USASP2019079566

PATIENT
  Sex: Male

DRUGS (1)
  1. PARSABIV [Suspect]
     Active Substance: ETELCALCETIDE HYDROCHLORIDE
     Indication: SECONDARY HYPERTHYROIDISM
     Dosage: 5 MILLIGRAM, 3 TIMES/WK
     Route: 065
     Dates: end: 2019

REACTIONS (2)
  - Muscle twitching [Unknown]
  - Rash [Unknown]
